FAERS Safety Report 9462586 (Version 3)
Quarter: 2014Q1

REPORT INFORMATION
  Report Type: Spontaneous
  Country: US (occurrence: US)
  Receive Date: 20130816
  Receipt Date: 20140106
  Transmission Date: 20141002
  Serious: Yes (Death, Other)
  Sender: FDA-Public Use
  Company Number: US-BRISTOL-MYERS SQUIBB COMPANY-18569772

PATIENT
  Age: 76 Year
  Sex: Female
  Weight: 83.9 kg

DRUGS (28)
  1. BYETTA PEN DISPOSABLE [Suspect]
     Indication: TYPE 2 DIABETES MELLITUS
     Route: 058
     Dates: start: 2007
  2. GEMZAR [Concomitant]
     Dates: start: 200712
  3. ACTOS [Concomitant]
     Route: 048
  4. ASPIRIN [Concomitant]
     Route: 048
  5. CALCIUM [Concomitant]
     Route: 048
  6. DIGOXIN [Concomitant]
     Route: 048
  7. FERROUS SULFATE [Concomitant]
     Route: 048
  8. METFORMIN [Concomitant]
     Route: 048
  9. MICARDIS [Concomitant]
     Indication: HYPERTENSION
     Route: 048
  10. PLAVIX [Concomitant]
  11. ZOCOR [Concomitant]
     Indication: HYPERLIPIDAEMIA
     Dosage: TABS
     Route: 048
  12. ZETIA [Concomitant]
     Route: 048
  13. VITAMIN B12 [Concomitant]
     Route: 048
  14. VITAMIN C [Concomitant]
     Route: 048
  15. VITAMIN E [Concomitant]
  16. GLYBURIDE [Concomitant]
     Route: 048
  17. TIAZAC [Concomitant]
     Dosage: 1DF:360 UNIT NOS
  18. POTASSIUM GLUCONATE [Concomitant]
     Route: 048
  19. GLYNASE [Concomitant]
     Indication: DIABETES MELLITUS
     Route: 048
  20. TRIAMCINOLONE [Concomitant]
  21. ALDACTONE [Concomitant]
     Route: 048
  22. XELODA [Concomitant]
  23. CARTIA XT [Concomitant]
  24. IRON [Concomitant]
  25. DEXAMETHASONE [Concomitant]
     Route: 048
  26. COLACE [Concomitant]
     Route: 048
  27. ACTOSE [Concomitant]
     Route: 048
  28. COUMADIN [Concomitant]
     Route: 048

REACTIONS (3)
  - Pancreatic carcinoma [Fatal]
  - Blood potassium decreased [Unknown]
  - International normalised ratio increased [Unknown]
